FAERS Safety Report 19696794 (Version 4)
Quarter: 2025Q1

REPORT INFORMATION
  Report Type: Spontaneous
  Country: US (occurrence: US)
  Receive Date: 20210813
  Receipt Date: 20250317
  Transmission Date: 20250409
  Serious: Yes (Other)
  Sender: SANOFI AVENTIS
  Company Number: US-SA-SAC20210812001157

PATIENT
  Age: 62 Year
  Sex: Female

DRUGS (2)
  1. KEVZARA [Suspect]
     Active Substance: SARILUMAB
     Indication: Rheumatoid arthritis
     Dosage: 200 MG, QOW
     Route: 058
     Dates: start: 20190913
  2. KEVZARA [Suspect]
     Active Substance: SARILUMAB
     Route: 058
     Dates: start: 202111

REACTIONS (4)
  - Rheumatoid arthritis [Unknown]
  - Arthralgia [Unknown]
  - Joint swelling [Unknown]
  - Condition aggravated [Unknown]
